FAERS Safety Report 5851756-2 (Version None)
Quarter: 2008Q3

REPORT INFORMATION
  Report Type: 
  Country: None (occurrence: None)
  Receive Date: 20080808
  Receipt Date: 20070820
  Transmission Date: 20090109
  Serious: Yes (Hospitalization)
  Sender: FDA-Public Use
  Company Number: US-JNJFOC-20070606552

PATIENT
  Age: 24 Month
  Sex: Male
  Weight: 16.3295 kg

DRUGS (2)
  1. CHILDREN'S MOTRIN [Suspect]
     Indication: ACCIDENTAL EXPOSURE
     Dosage: DRANK 3/4 OF A BOTTLE
     Dates: start: 20070626, end: 20070626
  2. FLOURIDE (CHLORHEXIDINE-SODIUM FLOURIDE) [Concomitant]

REACTIONS (2)
  - ACCIDENTAL DRUG INTAKE BY CHILD [None]
  - ACCIDENTAL OVERDOSE [None]
